FAERS Safety Report 15474362 (Version 2)
Quarter: 2018Q4

REPORT INFORMATION
  Report Type: Report from Study
  Country: ES (occurrence: ES)
  Receive Date: 20181008
  Receipt Date: 20181022
  Transmission Date: 20190205
  Serious: Yes (Death, Hospitalization)
  Sender: FDA-Public Use
  Company Number: ES-SA-2018SA276386

PATIENT
  Age: 69 Year
  Sex: Male

DRUGS (2)
  1. EFFICIB [Concomitant]
     Active Substance: METFORMIN HYDROCHLORIDE\SITAGLIPTIN PHOSPHATE
     Indication: TYPE 2 DIABETES MELLITUS
     Dosage: UNK
     Route: 048
  2. INSULIN GLARGINE [Suspect]
     Active Substance: INSULIN GLARGINE
     Indication: TYPE 2 DIABETES MELLITUS
     Dosage: UNK, UNK
     Route: 058
     Dates: start: 20180915

REACTIONS (4)
  - Pulmonary oedema [Fatal]
  - General physical health deterioration [Fatal]
  - Blood glucose increased [Fatal]
  - Infection [Fatal]

NARRATIVE: CASE EVENT DATE: 20180926
